FAERS Safety Report 5113619-X (Version None)
Quarter: 2006Q3

REPORT INFORMATION
  Report Type: 
  Country: None (occurrence: None)
  Receive Date: 20060925
  Receipt Date: 20060727
  Transmission Date: 20061208
  Serious: Yes (Hospitalization)
  Sender: FDA-Public Use
  Company Number: US-AMGEN-US187911

PATIENT
  Sex: Female
  Weight: 48.6 kg

DRUGS (2)
  1. ENBREL [Suspect]
     Indication: DRUG USE FOR UNKNOWN INDICATION
     Route: 058
     Dates: start: 20040116, end: 20040220
  2. PREDNISONE [Concomitant]

REACTIONS (19)
  - ANXIETY [None]
  - ASTHENIA [None]
  - BRONCHIECTASIS [None]
  - CHEST X-RAY ABNORMAL [None]
  - DEEP VEIN THROMBOSIS [None]
  - DEPRESSION [None]
  - DIZZINESS [None]
  - HAEMOPTYSIS [None]
  - HYPOTENSION [None]
  - LYMPHOMA [None]
  - MUSCULAR WEAKNESS [None]
  - MYOPATHY [None]
  - MYOPATHY STEROID [None]
  - PNEUMONIA HERPES VIRAL [None]
  - PNEUMONIA STAPHYLOCOCCAL [None]
  - PULMONARY EMBOLISM [None]
  - RESPIRATORY FAILURE [None]
  - SEPSIS SYNDROME [None]
  - STAPHYLOCOCCAL BACTERAEMIA [None]
